FAERS Safety Report 7607634-1 (Version None)
Quarter: 2011Q3

REPORT INFORMATION
  Report Type: 
  Country: None (occurrence: None)
  Receive Date: 20110713
  Receipt Date: 20110511
  Transmission Date: 20111222
  Serious: Yes (Other)
  Sender: FDA-Public Use
  Company Number: PHHY2011EC41933

PATIENT
  Sex: Female

DRUGS (2)
  1. DIOVAN [Suspect]
     Indication: HYPERTENSION
     Dosage: 1 TABLET 80MG DAILY
     Route: 048
     Dates: start: 20060404
  2. LEVOTHYROXINE SODIUM [Concomitant]

REACTIONS (5)
  - NASOPHARYNGITIS [None]
  - OROPHARYNGEAL PAIN [None]
  - COUGH [None]
  - HYPOTHYROIDISM [None]
  - PAIN IN EXTREMITY [None]
